FAERS Safety Report 5996716-6 (Version None)
Quarter: 2008Q4

REPORT INFORMATION
  Report Type: 
  Country: None (occurrence: None)
  Receive Date: 20081212
  Receipt Date: 20081023
  Transmission Date: 20090506
  Serious: No
  Sender: FDA-Public Use
  Company Number: US-ABBOTT-08P-163-0483453-00

PATIENT
  Sex: Female
  Weight: 57.658 kg

DRUGS (11)
  1. HUMIRA [Suspect]
     Indication: RHEUMATOID ARTHRITIS
     Route: 058
     Dates: start: 20080501
  2. ALENDRONATE SODIUM [Concomitant]
     Indication: OSTEOPOROSIS
     Route: 048
     Dates: start: 20060101
  3. LORAZEPAM [Concomitant]
     Indication: ANXIETY
     Route: 048
     Dates: start: 20070101
  4. SERTRALINE [Concomitant]
     Indication: ANXIETY
     Route: 048
     Dates: start: 20060101
  5. VOLTARIN [Concomitant]
     Indication: ARTHRITIS
     Route: 048
     Dates: start: 20030101
  6. PROPACET 100 [Concomitant]
     Indication: PAIN
     Dosage: 100/650 MG
  7. BUT/APAP/CF 50/500/40 [Concomitant]
     Indication: MIGRAINE
     Route: 048
  8. LOMOTIL [Concomitant]
     Indication: COLITIS
     Route: 048
  9. ZOLPIDEM TARTRATE [Concomitant]
     Indication: INSOMNIA
     Dosage: 1/2 TABLET
     Route: 048
  10. MARVELON [Concomitant]
     Indication: DRUG USE FOR UNKNOWN INDICATION
     Route: 048
     Dates: start: 20080401
  11. FOLIC ACID [Concomitant]
     Indication: DRUG USE FOR UNKNOWN INDICATION
     Route: 048

REACTIONS (1)
  - DRUG DELIVERY SYSTEM MALFUNCTION [None]
